FAERS Safety Report 21302587 (Version 2)
Quarter: 2025Q1

REPORT INFORMATION
  Report Type: Report from Study
  Country: FR (occurrence: FR)
  Receive Date: 20220907
  Receipt Date: 20250318
  Transmission Date: 20250409
  Serious: Yes (Hospitalization)
  Sender: TAKEDA
  Company Number: FR-TAKEDA-FR201946069

PATIENT
  Age: 18 Year
  Sex: Male

DRUGS (17)
  1. TEDUGLUTIDE [Suspect]
     Active Substance: TEDUGLUTIDE
     Indication: Short-bowel syndrome
     Dosage: 2.4 MILLIGRAM, QD
     Dates: start: 20180817, end: 20190624
  2. TEDUGLUTIDE [Suspect]
     Active Substance: TEDUGLUTIDE
  3. TEDUGLUTIDE [Suspect]
     Active Substance: TEDUGLUTIDE
  4. TEDUGLUTIDE [Suspect]
     Active Substance: TEDUGLUTIDE
  5. INNOHEP [Concomitant]
     Active Substance: TINZAPARIN SODIUM
     Indication: Thrombosis prophylaxis
     Dosage: 17000 INTERNATIONAL UNIT, QD
     Dates: start: 20220302, end: 202203
  6. INNOHEP [Concomitant]
     Active Substance: TINZAPARIN SODIUM
     Dosage: 17000 INTERNATIONAL UNIT, QD
     Dates: start: 20220411
  7. URSODIOL [Concomitant]
     Active Substance: URSODIOL
     Indication: Deficiency of bile secretion
     Dosage: 750 MILLIGRAM, QD
     Dates: start: 20220302
  8. Spasfon [Concomitant]
     Indication: Pain prophylaxis
     Dosage: 160 MILLIGRAM, QD
     Dates: start: 20220304
  9. HUMIRA [Concomitant]
     Active Substance: ADALIMUMAB
     Indication: Arthralgia
     Dosage: 40 MILLIGRAM, 4/WEEK
     Dates: start: 20220415
  10. URSODIOL [Concomitant]
     Active Substance: URSODIOL
     Indication: Cholelithiasis
     Dosage: 750 MILLIGRAM, QD
     Dates: start: 20050730
  11. ESOMEPRAZOLE [Concomitant]
     Active Substance: ESOMEPRAZOLE
     Indication: Gastrooesophageal reflux disease
     Dosage: 40 MILLIGRAM, QD
     Dates: start: 201609
  12. CALCIUM CARBONATE [Concomitant]
     Active Substance: CALCIUM CARBONATE
     Indication: Blood calcium
     Dosage: 500 MILLIGRAM, QD
     Dates: start: 200901
  13. SERETIDE [Concomitant]
     Active Substance: FLUTICASONE PROPIONATE\SALMETEROL XINAFOATE
     Indication: Asthma
     Dosage: UNK UNK, BID
     Dates: start: 201012
  14. BACTRIM [Concomitant]
     Active Substance: SULFAMETHOXAZOLE\TRIMETHOPRIM
     Dosage: 400 MILLIGRAM, QD
     Dates: start: 20170419
  15. CREON [Concomitant]
     Active Substance: PANCRELIPASE AMYLASE\PANCRELIPASE LIPASE\PANCRELIPASE PROTEASE
     Dosage: 25000 INTERNATIONAL UNIT, BID
     Dates: start: 20150312
  16. LOPERAMIDE [Concomitant]
     Active Substance: LOPERAMIDE
     Indication: Diarrhoea
     Dosage: 1000 MILLIGRAM, QD
     Dates: start: 20180622
  17. ASPIRIN DL-LYSINE [Concomitant]
     Active Substance: ASPIRIN DL-LYSINE
     Dosage: 100 MILLIGRAM, QD
     Dates: start: 20180409

REACTIONS (1)
  - Jugular vein thrombosis [Recovered/Resolved]

NARRATIVE: CASE EVENT DATE: 20190616
